FAERS Safety Report 4532217-X (Version None)
Quarter: 2004Q4

REPORT INFORMATION
  Report Type: 
  Country: None (occurrence: None)
  Receive Date: 20041217
  Receipt Date: 20041130
  Transmission Date: 20050328
  Serious: Yes (Death)
  Sender: FDA-Public Use
  Company Number: 2004101165

PATIENT

DRUGS (2)
  1. PREDNISOLONE [Suspect]
     Indication: MIXED CONNECTIVE TISSUE DISEASE
     Dosage: 5 MG (5 MG, DAILY INTERVAL:  EVERY DAY), ORAL
     Route: 048
  2. METHOTREXATE [Suspect]
     Indication: MIXED CONNECTIVE TISSUE DISEASE
     Dosage: (10 MG, WEEKLY INTERVAL:  EVERY WEEK), ORAL
     Route: 048

REACTIONS (1)
  - BACTERIAL SEPSIS [None]
